FAERS Safety Report 9465895 (Version 4)
Quarter: 2014Q1

REPORT INFORMATION
  Report Type: Spontaneous
  Country: US (occurrence: US)
  Receive Date: 20130820
  Receipt Date: 20140130
  Transmission Date: 20141002
  Serious: Yes (Hospitalization, Other)
  Sender: FDA-Public Use
  Company Number: US-ASTELLAS-2013US008715

PATIENT
  Age: 80 Year
  Sex: Female
  Weight: 52 kg

DRUGS (5)
  1. PROGRAF [Suspect]
     Indication: RENAL TRANSPLANT
     Dosage: 1.5 MG, BID
     Route: 048
     Dates: start: 20080429
  2. PROGRAF [Suspect]
     Dosage: 2 MG IN AM, 1.5 MG IN PM
     Route: 048
     Dates: start: 201211
  3. PERCOCET /00867901/ [Suspect]
     Indication: PRODUCT USED FOR UNKNOWN INDICATION
     Dosage: UNK
     Route: 065
  4. TORADOL [Suspect]
     Indication: PRODUCT USED FOR UNKNOWN INDICATION
     Dosage: UNK
     Route: 065
  5. CELLCEPT                           /01275102/ [Concomitant]
     Indication: PRODUCT USED FOR UNKNOWN INDICATION
     Dosage: UNK
     Route: 065

REACTIONS (19)
  - Coronary artery disease [Recovered/Resolved]
  - Mitral valve incompetence [Recovered/Resolved]
  - Cardiac pacemaker insertion [Unknown]
  - Cardiac pacemaker insertion [Unknown]
  - Post procedural haemorrhage [Unknown]
  - Focal segmental glomerulosclerosis [Unknown]
  - Hyperparathyroidism [Unknown]
  - Acute pulmonary oedema [Recovered/Resolved]
  - Mental status changes [Recovered/Resolved]
  - Myocardial infarction [Unknown]
  - Anaemia [Recovering/Resolving]
  - Pleural effusion [Recovered/Resolved]
  - Gastrointestinal haemorrhage [Unknown]
  - Urinary tract infection pseudomonal [Recovered/Resolved]
  - Hypotension [Recovering/Resolving]
  - Renal failure acute [Recovered/Resolved]
  - Palpitations [Unknown]
  - Abdominal pain [Unknown]
  - Oedema peripheral [Recovered/Resolved]
